FAERS Safety Report 5594422-3 (Version None)
Quarter: 2008Q1

REPORT INFORMATION
  Report Type: 
  Country: None (occurrence: None)
  Receive Date: 20080117
  Receipt Date: 20080109
  Transmission Date: 20080703
  Serious: Yes (Hospitalization)
  Sender: FDA-Public Use
  Company Number: FR-JNJFOC-20061000003

PATIENT
  Sex: Female
  Weight: 18 kg

DRUGS (3)
  1. DURAGESIC-100 [Suspect]
     Indication: THERMAL BURN
     Route: 062
  2. DURAGESIC-100 [Suspect]
     Indication: PAIN
     Route: 062
  3. CODENFAN [Concomitant]
     Route: 065

REACTIONS (6)
  - DECEREBRATION [None]
  - DRUG TOXICITY [None]
  - HYPERPYREXIA [None]
  - LOSS OF CONSCIOUSNESS [None]
  - MIOSIS [None]
  - OFF LABEL USE [None]
